FAERS Safety Report 8074337-1 (Version None)
Quarter: 2011Q4

REPORT INFORMATION
  Report Type: 
  Country: None (occurrence: None)
  Receive Date: 20111221
  Receipt Date: 20101228
  Transmission Date: 20120403
  Serious: Yes (Other)
  Sender: FDA-Public Use
  Company Number: PHBS2009US01048

PATIENT
  Age: 51 Year
  Sex: Male
  Weight: 88.1 kg

DRUGS (2)
  1. ZANTAC [Concomitant]
  2. EXJADE [Suspect]
     Indication: IRON OVERLOAD
     Dosage: 1875 MG, QD, ORAL
     Route: 048
     Dates: start: 20090701, end: 20090901

REACTIONS (4)
  - TINNITUS [None]
  - DIARRHOEA [None]
  - DEAFNESS [None]
  - CERUMEN IMPACTION [None]
